FAERS Safety Report 25564279 (Version 1)
Quarter: 2025Q3

REPORT INFORMATION
  Report Type: Spontaneous
  Country: EU (occurrence: EU)
  Receive Date: 20250716
  Receipt Date: 20250716
  Transmission Date: 20251020
  Serious: Yes (Other)
  Sender: DEXCEL LTD.
  Company Number: None

PATIENT
  Age: 80 Year
  Sex: Female
  Weight: 50 kg

DRUGS (4)
  1. OMEPRAZOLE [Suspect]
     Active Substance: OMEPRAZOLE
     Indication: Gastritis
     Dosage: INITIALLY 2 TABLETS DAILY, LATER 1X TEL
     Route: 048
     Dates: start: 20241212
  2. OMEPRAZOLE [Suspect]
     Active Substance: OMEPRAZOLE
     Indication: Gastritis
     Dosage: INITIALLY 2 TABLETS DAILY, LATER 1X TEL
     Route: 048
     Dates: end: 20250501
  3. SOMATOSTATIN [Concomitant]
     Active Substance: SOMATOSTATIN
     Indication: Neuroendocrine tumour
  4. VALSARTAN [Concomitant]
     Active Substance: VALSARTAN
     Indication: Hypertension

REACTIONS (5)
  - Blood phosphorus decreased [Recovered/Resolved]
  - Cardiac failure [Unknown]
  - Dizziness [Unknown]
  - Asthenia [Recovering/Resolving]
  - Malaise [Unknown]

NARRATIVE: CASE EVENT DATE: 20250101
